FAERS Safety Report 15929454 (Version 2)
Quarter: 2023Q1

REPORT INFORMATION
  Report Type: Report from Study
  Country: DE (occurrence: DE)
  Receive Date: 20190206
  Receipt Date: 20230130
  Transmission Date: 20230417
  Serious: Yes (Hospitalization)
  Sender: FDA-Public Use
  Company Number: DE-AMGEN-DEUNI2017114496

PATIENT
  Age: 79 Year
  Sex: Male
  Weight: 90 kg

DRUGS (11)
  1. DEXAMETHASONE [Suspect]
     Active Substance: DEXAMETHASONE
     Indication: Plasma cell myeloma
     Route: 065
     Dates: start: 20170627
  2. CARFILZOMIB [Suspect]
     Active Substance: CARFILZOMIB
     Indication: Plasma cell myeloma
     Route: 042
     Dates: start: 20170627, end: 20170628
  3. CARFILZOMIB [Suspect]
     Active Substance: CARFILZOMIB
     Route: 042
     Dates: start: 20170704, end: 20170712
  4. HYDROMORPHONHYDROCHLORID BETA [Concomitant]
     Indication: Product used for unknown indication
  5. HYDROMORPHON RATIOPHARM [Concomitant]
     Indication: Prophylaxis
  6. RIVAROXABAN [Concomitant]
     Active Substance: RIVAROXABAN
     Indication: Prophylaxis
  7. FLUTAMIDE [Concomitant]
     Active Substance: FLUTAMIDE
     Indication: Prophylaxis
  8. PAMIDRONAT GRY [Concomitant]
     Indication: Prophylaxis
     Dates: start: 20160411, end: 20170704
  9. BISOPROLOL [Concomitant]
     Active Substance: BISOPROLOL
     Indication: Prophylaxis
  10. DICLOFENAC [Concomitant]
     Active Substance: DICLOFENAC
     Indication: Prophylaxis
  11. DIETARY SUPPLEMENT [Concomitant]
     Active Substance: DIETARY SUPPLEMENT
     Indication: Prophylaxis

REACTIONS (2)
  - Stomatitis [Recovered/Resolved]
  - Oral candidiasis [Recovered/Resolved]

NARRATIVE: CASE EVENT DATE: 20170717
